FAERS Safety Report 13415607 (Version 1)
Quarter: 2017Q2

REPORT INFORMATION
  Report Type: Spontaneous
  Country: VE (occurrence: VE)
  Receive Date: 20170406
  Receipt Date: 20170406
  Transmission Date: 20170830
  Serious: Yes (Other)
  Sender: FDA-Public Use
  Company Number: VE-FRESENIUS KABI-FK201702747

PATIENT
  Age: 24 Year
  Sex: Female

DRUGS (1)
  1. AMIKACIN (MANUFACTURER UNKNOWN) [Suspect]
     Active Substance: AMIKACIN
     Indication: VAGINAL INFECTION
     Route: 030

REACTIONS (1)
  - Embolia cutis medicamentosa [Recovering/Resolving]
